FAERS Safety Report 14305006 (Version 1)
Quarter: 2017Q4

REPORT INFORMATION
  Report Type: Report from Study
  Country: JP (occurrence: JP)
  Receive Date: 20171219
  Receipt Date: 20171219
  Transmission Date: 20180321
  Serious: Yes (Hospitalization)
  Sender: FDA-Public Use
  Company Number: JP-OTSUKA-000077

PATIENT

DRUGS (9)
  1. ARIPIPRAZOLE. [Suspect]
     Active Substance: ARIPIPRAZOLE
     Indication: SCHIZOPHRENIA
     Dosage: 12 MG, QD
     Route: 048
     Dates: start: 20070612, end: 20070709
  2. LENDEM [Concomitant]
     Indication: INITIAL INSOMNIA
     Route: 048
     Dates: start: 20070528, end: 20070714
  3. RISPERIDONE. [Concomitant]
     Active Substance: RISPERIDONE
     Indication: RESTLESSNESS
     Route: 048
     Dates: start: 20070714, end: 20070714
  4. RISPERIDONE. [Concomitant]
     Active Substance: RISPERIDONE
     Dosage: UNK
     Dates: start: 20070714, end: 20070714
  5. TASMOLIN [Concomitant]
     Active Substance: BIPERIDEN
     Route: 048
     Dates: start: 20070507, end: 20070624
  6. OLANZAPINE. [Concomitant]
     Active Substance: OLANZAPINE
     Dosage: UNK
     Dates: start: 20070423
  7. ZYPREXA [Concomitant]
     Active Substance: OLANZAPINE
     Indication: SCHIZOPHRENIA
     Route: 048
     Dates: start: 20070423
  8. TASMOLIN [Concomitant]
     Active Substance: BIPERIDEN
     Route: 048
     Dates: start: 20070625
  9. ARIPIPRAZOLE. [Suspect]
     Active Substance: ARIPIPRAZOLE
     Dosage: 18 MG, QD
     Route: 048
     Dates: start: 20070710, end: 20070714

REACTIONS (3)
  - Affect lability [Recovered/Resolved]
  - Stupor [Unknown]
  - Libido increased [Recovered/Resolved]

NARRATIVE: CASE EVENT DATE: 20070625
